FAERS Safety Report 7875405-7 (Version None)
Quarter: 2011Q4

REPORT INFORMATION
  Report Type: 
  Country: None (occurrence: None)
  Receive Date: 20111031
  Receipt Date: 20111019
  Transmission Date: 20120403
  Serious: Yes (Other)
  Sender: FDA-Public Use
  Company Number: PHEH2011US07276

PATIENT
  Age: 83 Year
  Sex: Female

DRUGS (1)
  1. EXFORGE [Suspect]

REACTIONS (6)
  - RENAL DISORDER [None]
  - MALAISE [None]
  - ATRIOVENTRICULAR BLOCK [None]
  - PERIPHERAL ARTERIAL OCCLUSIVE DISEASE [None]
  - HYPERTENSION [None]
  - FEELING ABNORMAL [None]
